FAERS Safety Report 9314524 (Version 3)
Quarter: 2013Q3

REPORT INFORMATION
  Report Type: Spontaneous
  Country: US (occurrence: US)
  Receive Date: 20130529
  Receipt Date: 20130715
  Transmission Date: 20140515
  Serious: No
  Sender: FDA-Public Use
  Company Number: US-PFIZER INC-2013163376

PATIENT
  Age: 57 Year
  Sex: Male
  Weight: 74.83 kg

DRUGS (2)
  1. FLECTOR [Suspect]
     Indication: BACK PAIN
     Dosage: UNK
     Route: 062
     Dates: start: 201304
  2. CADUET [Concomitant]
     Indication: HYPERTENSION
     Dosage: 10/20MG, DAILY

REACTIONS (1)
  - Drug ineffective [Unknown]
